FAERS Safety Report 11330551 (Version 1)
Quarter: 2015Q3

REPORT INFORMATION
  Report Type: Spontaneous
  Country: US (occurrence: US)
  Receive Date: 20150803
  Receipt Date: 20150803
  Transmission Date: 20151125
  Serious: No
  Sender: FDA-Public Use
  Company Number: US-TAKEDA-2015TUS005477

PATIENT
  Sex: Female

DRUGS (4)
  1. ^MEDS FOR HYPERTENSION^ [Concomitant]
     Indication: HYPERTENSION
     Dosage: UNK
  2. DIGOXIN. [Interacting]
     Active Substance: DIGOXIN
     Dosage: UNK
     Route: 048
  3. COLCRYS [Suspect]
     Active Substance: COLCHICINE
     Indication: GOUT
     Dosage: 1 TABLET, QD
     Route: 048
     Dates: end: 201502
  4. COLCRYS [Interacting]
     Active Substance: COLCHICINE
     Dosage: 1 TABLET, EVERY OTHER DAY
     Route: 048
     Dates: start: 201502

REACTIONS (3)
  - Palpitations [Unknown]
  - Drug interaction [Unknown]
  - Inappropriate schedule of drug administration [Not Recovered/Not Resolved]
